FAERS Safety Report 25008486 (Version 1)
Quarter: 2025Q1

REPORT INFORMATION
  Report Type: Spontaneous
  Country: US (occurrence: None)
  Receive Date: 20250224
  Receipt Date: 20250224
  Transmission Date: 20250409
  Serious: No
  Sender: FDA-CTU
  Company Number: None

PATIENT
  Age: 59 Year

DRUGS (21)
  1. SIMLANDI [Suspect]
     Active Substance: ADALIMUMAB-RYVK
     Indication: Rheumatoid arthritis
     Route: 058
     Dates: start: 20240710
  2. PROTONIX [Concomitant]
     Active Substance: PANTOPRAZOLE SODIUM
  3. CALCIUM+ D SOFT CHEWS CARAMEL [Concomitant]
  4. DICYCLOMINE [Concomitant]
     Active Substance: DICYCLOMINE HYDROCHLORIDE
  5. INSULIN GLARGINE [Concomitant]
     Active Substance: INSULIN GLARGINE
  6. SOLIFENACIN [Concomitant]
     Active Substance: SOLIFENACIN
  7. ACETAMINOPHEN [Concomitant]
     Active Substance: ACETAMINOPHEN
  8. BACLOFEN [Concomitant]
     Active Substance: BACLOFEN
  9. DICLOFENAC SODIUM [Concomitant]
     Active Substance: DICLOFENAC SODIUM
  10. FERROUS SULFATE [Concomitant]
     Active Substance: FERROUS SULFATE
  11. LORATADINE [Concomitant]
     Active Substance: LORATADINE
  12. NYSTATIN [Concomitant]
     Active Substance: NYSTATIN
  13. PAROXETINE [Concomitant]
     Active Substance: PAROXETINE
  14. PRAVASTATIN [Concomitant]
     Active Substance: PRAVASTATIN
  15. PREGABALIN [Concomitant]
     Active Substance: PREGABALIN
  16. PROLIA [Concomitant]
     Active Substance: DENOSUMAB
  17. SUMATRIPTAN [Concomitant]
     Active Substance: SUMATRIPTAN
  18. TOPIRAMATE [Concomitant]
     Active Substance: TOPIRAMATE
  19. TRULICITY [Concomitant]
     Active Substance: DULAGLUTIDE
  20. VITAMIN B12 [Concomitant]
     Active Substance: CYANOCOBALAMIN
  21. VITAMIN D3 [Concomitant]
     Active Substance: CHOLECALCIFEROL

REACTIONS (2)
  - Fall [None]
  - Hip fracture [None]

NARRATIVE: CASE EVENT DATE: 20250221
